FAERS Safety Report 6825277-4 (Version None)
Quarter: 2010Q3

REPORT INFORMATION
  Report Type: 
  Country: None (occurrence: None)
  Receive Date: 20100708
  Receipt Date: 20061207
  Transmission Date: 20110219
  Serious: No
  Sender: FDA-Public Use
  Company Number: US-PFIZER INC-2006153690

PATIENT
  Sex: Female
  Weight: 74.84 kg

DRUGS (5)
  1. CHANTIX [Suspect]
     Indication: SMOKING CESSATION THERAPY
     Dates: start: 20061130
  2. ASPIRIN [Concomitant]
  3. PROZAC [Concomitant]
  4. XANAX [Concomitant]
  5. VITAMINS [Concomitant]

REACTIONS (3)
  - DYSPEPSIA [None]
  - MALAISE [None]
  - NAUSEA [None]
